FAERS Safety Report 21579605 (Version 1)
Quarter: 2022Q4

REPORT INFORMATION
  Report Type: Spontaneous
  Country: US (occurrence: US)
  Receive Date: 20221110
  Receipt Date: 20221110
  Transmission Date: 20230113
  Serious: Yes (Hospitalization)
  Sender: FDA-Public Use
  Company Number: US-Fresenius Medical Care Renal Therapies Group-FMC-2211-001761

PATIENT
  Age: 80 Year
  Sex: Female
  Weight: 65.5 kg

DRUGS (1)
  1. DELFLEX WITH DEXTROSE 1.5% LOW MAGNESIUM LOW CALCIUM [Suspect]
     Active Substance: CALCIUM CHLORIDE\DEXTROSE\MAGNESIUM CHLORIDE\SODIUM CHLORIDE\SODIUM LACTATE
     Indication: End stage renal disease
     Dosage: 1600 ML FOR 6 CYCLES WITH NO LAST FILL AND NO DAYTIME EXCHANGE
     Route: 033

REACTIONS (2)
  - Fall [Recovering/Resolving]
  - Subdural haematoma [Recovering/Resolving]
